FAERS Safety Report 8922798 (Version 1)
Quarter: 2012Q4

REPORT INFORMATION
  Report Type: Spontaneous
  Country: US (occurrence: None)
  Receive Date: 20121115
  Receipt Date: 20121115
  Transmission Date: 20130627
  Serious: Yes (Other)
  Sender: FDA-Public Use
  Company Number: JPI-P-026121

PATIENT
  Age: 29 Year
  Sex: Female

DRUGS (16)
  1. XYREM (500 MILLIGRAM/MILLILITERS, SOLUTION) (SODIUM OXYBATE) [Suspect]
     Indication: NARCOLEPSY
     Route: 048
     Dates: start: 20110330, end: 2011
  2. XYREM (500 MILLIGRAM/MILLILITERS, SOLUTION) (SODIUM OXYBATE) [Suspect]
     Indication: NARCOLEPSY
     Route: 048
     Dates: start: 2011, end: 2011
  3. XYREM (500 MILLIGRAM/MILLILITERS, SOLUTION) (SODIUM OXYBATE) [Suspect]
     Indication: NARCOLEPSY
     Route: 048
     Dates: start: 20110511, end: 20120812
  4. MONTELUKAST SODIUM (TABLETS) [Concomitant]
  5. FOLIC ACID (TABLETS) [Concomitant]
  6. PRAZOSIN HYDROCHLORIDE (CAPSULES) [Concomitant]
  7. AMOXICILLIN (CAPSULES) [Concomitant]
  8. VITAMIN D (CAPSULES) [Concomitant]
  9. VENLAFAXINE HYDROCHLORIDE (TABLETS) [Concomitant]
  10. LISDEXAMFETAMINE DIMESYLATE (CAPSULES) [Concomitant]
  11. PAROXETINE HYDROCHLORIDE [Concomitant]
  12. ALPRAZOLAM (TABLETS) [Concomitant]
  13. CETIRIZINE HYDROCHLORIDE (TABLETS) [Concomitant]
  14. ALBUTEROL SULFATE W/IPRATROPIUM BROMIDE [Concomitant]
  15. ALBUTEROL SULFATE [Concomitant]
  16. FLUTICASONE W/SALMETEROL [Concomitant]

REACTIONS (6)
  - Dehydration [None]
  - Syncope [None]
  - Pregnancy [None]
  - Exposure during pregnancy [None]
  - Selective abortion [None]
  - Nasal congestion [None]
